FAERS Safety Report 4270659-0 (Version None)
Quarter: 2004Q1

REPORT INFORMATION
  Report Type: 
  Country: None (occurrence: None)
  Receive Date: 20040114
  Receipt Date: 20031023
  Transmission Date: 20041129
  Serious: Yes (Death, Other)
  Sender: FDA-Public Use
  Company Number: WAES 0310USA02922

PATIENT
  Age: 75 Year
  Sex: Male

DRUGS (10)
  1. [THERAPY UNSPECIFIED] [Concomitant]
     Route: 048
     Dates: end: 20030930
  2. ROCALTROL [Concomitant]
     Route: 048
     Dates: end: 20030930
  3. ARGAMATE JELLY [Concomitant]
     Route: 048
     Dates: start: 20031001, end: 20031007
  4. NEUER [Concomitant]
     Route: 048
     Dates: end: 20030930
  5. RYTHMODAN [Concomitant]
     Indication: ATRIAL FIBRILLATION
     Route: 048
     Dates: start: 20031004, end: 20031004
  6. PEPCID [Suspect]
     Route: 048
     Dates: start: 20031001, end: 20031007
  7. COVERSYL [Concomitant]
     Route: 048
     Dates: start: 20031001, end: 20031007
  8. RANITIDINE HYDROCHLORIDE [Concomitant]
     Route: 048
     Dates: end: 20030930
  9. ANPLAG [Concomitant]
     Indication: ARTERIOSCLEROSIS
     Route: 048
     Dates: end: 20031007
  10. ACECOL [Concomitant]
     Route: 048
     Dates: end: 20030930

REACTIONS (10)
  - BLOOD GLUCOSE DECREASED [None]
  - BLOOD GLUCOSE INCREASED [None]
  - CARDIAC ARREST [None]
  - COLD SWEAT [None]
  - DIALYSIS [None]
  - PANCYTOPENIA [None]
  - PLEURAL EFFUSION [None]
  - PYREXIA [None]
  - RESPIRATORY ARREST [None]
  - RESPIRATORY RATE INCREASED [None]
